FAERS Safety Report 5709366-3 (Version None)
Quarter: 2008Q2

REPORT INFORMATION
  Report Type: 
  Country: None (occurrence: None)
  Receive Date: 20080418
  Receipt Date: 20080410
  Transmission Date: 20081010
  Serious: Yes (Hospitalization)
  Sender: FDA-Public Use
  Company Number: FR-BRISTOL-MYERS SQUIBB COMPANY-14155139

PATIENT
  Age: 65 Year
  Sex: Female

DRUGS (5)
  1. GLUCOPHAGE [Suspect]
     Indication: DIABETES MELLITUS
     Route: 048
     Dates: start: 20080121, end: 20080224
  2. EFFEXOR [Suspect]
     Indication: DEPRESSION
     Dosage: 50MG/DAY FROM 21-24JAN2008;EFFEXOR SR 75MG FROM 24JAN TO 08-FEB-2008.
     Route: 048
     Dates: start: 20080121, end: 20080208
  3. GLIMEPIRIDE [Suspect]
     Indication: DIABETES MELLITUS
     Route: 048
     Dates: end: 20080224
  4. OFLOXACIN [Concomitant]
  5. INSULIN [Concomitant]

REACTIONS (2)
  - HYPERKALAEMIA [None]
  - HYPONATRAEMIA [None]
